FAERS Safety Report 4982480-6 (Version None)
Quarter: 2006Q2

REPORT INFORMATION
  Report Type: 
  Country: None (occurrence: None)
  Receive Date: 20060419
  Receipt Date: 20060411
  Transmission Date: 20061013
  Serious: Yes (Disabling)
  Sender: FDA-Public Use
  Company Number: 2006050095

PATIENT
  Sex: Female
  Weight: 90.7194 kg

DRUGS (8)
  1. ZYRTEC [Suspect]
     Indication: SINUS DISORDER
     Dosage: 10 MG (10 MG, 1 IN 1 D)
  2. HYDRALAZINE HCL [Concomitant]
  3. NAPROXEN [Concomitant]
  4. FLEXERIL [Concomitant]
  5. GUAIFENESIN (GUAIFENESIN) [Concomitant]
  6. AVALIDE [Concomitant]
  7. LEXAPRO [Concomitant]
  8. ELAVIL [Concomitant]

REACTIONS (5)
  - BLOOD CHOLESTEROL INCREASED [None]
  - CHRONIC FATIGUE SYNDROME [None]
  - FIBROMYALGIA [None]
  - OSTEOARTHRITIS [None]
  - PAIN [None]
